FAERS Safety Report 19749412 (Version 1)
Quarter: 2021Q3

REPORT INFORMATION
  Report Type: Spontaneous
  Country: US (occurrence: US)
  Receive Date: 20210823
  Receipt Date: 20210823
  Transmission Date: 20211014
  Serious: No
  Sender: FDA-Public Use
  Company Number: None

PATIENT
  Age: 55 Year
  Sex: Female

DRUGS (1)
  1. XELODA [Suspect]
     Active Substance: CAPECITABINE
     Indication: APPENDIX CANCER
     Route: 048
     Dates: start: 202011

REACTIONS (5)
  - Off label use [None]
  - Blood potassium decreased [None]
  - Diarrhoea [None]
  - Weight decreased [None]
  - Blood magnesium decreased [None]

NARRATIVE: CASE EVENT DATE: 20210823
